FAERS Safety Report 5594432-6 (Version None)
Quarter: 2008Q1

REPORT INFORMATION
  Report Type: 
  Country: None (occurrence: None)
  Receive Date: 20080117
  Receipt Date: 20080109
  Transmission Date: 20080703
  Serious: Yes (Death, Life-Threatening, Hospitalization)
  Sender: FDA-Public Use
  Company Number: JP-JNJFOC-20071202096

PATIENT
  Sex: Female

DRUGS (10)
  1. FINIBAX [Suspect]
     Route: 041
  2. FINIBAX [Suspect]
     Route: 041
  3. FINIBAX [Suspect]
     Indication: PNEUMONIA
     Route: 041
  4. AMBISOME [Suspect]
     Indication: PNEUMONIA
     Route: 065
  5. VANCOMYCIN [Suspect]
     Indication: PNEUMONIA
     Route: 065
  6. FUNGUARD [Concomitant]
     Indication: PNEUMONIA
     Route: 065
  7. GRAN [Concomitant]
     Indication: PNEUMONIA
     Route: 058
  8. ORGARAN [Concomitant]
     Route: 042
  9. REMINARON [Concomitant]
     Route: 041
  10. FIRSTCIN [Concomitant]
     Indication: PNEUMONIA
     Route: 041

REACTIONS (6)
  - BRONCHOPULMONARY ASPERGILLOSIS [None]
  - HEPATIC FUNCTION ABNORMAL [None]
  - JAUNDICE [None]
  - PNEUMONIA BACTERIAL [None]
  - PULMONARY HAEMORRHAGE [None]
  - RENAL IMPAIRMENT [None]
